FAERS Safety Report 5151421-3 (Version None)
Quarter: 2006Q4

REPORT INFORMATION
  Report Type: 
  Country: None (occurrence: None)
  Receive Date: 20061115
  Receipt Date: 20060726
  Transmission Date: 20070319
  Serious: Yes (Hospitalization, Other)
  Sender: FDA-Public Use
  Company Number: PHNU2006DE02621

PATIENT
  Age: 68 Year
  Sex: Female
  Weight: 73 kg

DRUGS (6)
  1. GLEEVEC [Suspect]
     Indication: CHRONIC MYELOID LEUKAEMIA
     Dosage: 400 MG, QD
     Route: 048
     Dates: start: 20011101, end: 20060801
  2. LEVOTHYROXINE SODIUM [Concomitant]
     Indication: HYPOTHYROIDISM
     Dosage: 150 MG/DAY
     Route: 048
  3. FUROSEMIDE [Concomitant]
     Indication: CARDIAC FAILURE
     Dosage: 40 MG/DAY
     Route: 048
     Dates: start: 20060601
  4. PANTOPRAZOLE SODIUM [Concomitant]
     Indication: REFLUX OESOPHAGITIS
     Dosage: 20 MG/DAY
     Route: 048
     Dates: start: 20060601
  5. DIMENHYDRINATE [Concomitant]
     Indication: NAUSEA
     Dosage: UNK, PRN
     Route: 054
     Dates: start: 20060701
  6. ACTRAPHANE HM [Concomitant]
     Indication: DIABETES MELLITUS
     Dosage: 12 - 0 - 18 IU/DAY
     Route: 058

REACTIONS (7)
  - BREAST CANCER RECURRENT [None]
  - MALIGNANT PLEURAL EFFUSION [None]
  - METASTASES TO RECTUM [None]
  - MUCOSAL ULCERATION [None]
  - ORAL PAIN [None]
  - PARANEOPLASTIC SYNDROME [None]
  - STOMATITIS [None]
